FAERS Safety Report 4796499-1 (Version None)
Quarter: 2005Q3

REPORT INFORMATION
  Report Type: 
  Country: None (occurrence: None)
  Receive Date: 20050916
  Receipt Date: 20041015
  Transmission Date: 20060218
  Serious: Yes (Other)
  Sender: FDA-Public Use
  Company Number: US-JNJFOC-20041005965

PATIENT
  Sex: Female

DRUGS (3)
  1. TOPAMAX [Suspect]
     Indication: MIGRAINE PROPHYLAXIS
     Dosage: 200 MG, 2 IN 1 DAY, ORAL
     Route: 048
  2. LIPITOR [Concomitant]
  3. ATENOLOL [Concomitant]

REACTIONS (3)
  - ALOPECIA [None]
  - AMNESIA [None]
  - HALLUCINATION [None]
